FAERS Safety Report 6399568-8 (Version None)
Quarter: 2009Q4

REPORT INFORMATION
  Report Type: 
  Country: None (occurrence: None)
  Receive Date: 20091014
  Receipt Date: 20080229
  Transmission Date: 20100525
  Serious: Yes (Other)
  Sender: FDA-Public Use
  Company Number: US-ASTRAZENECA-2007UW21683

PATIENT
  Age: 619 Month
  Sex: Male
  Weight: 176.9 kg

DRUGS (9)
  1. SEROQUEL [Suspect]
     Indication: DEPRESSION
     Route: 048
     Dates: start: 20021001, end: 20040901
  2. SEROQUEL [Suspect]
     Indication: ANXIETY
     Route: 048
     Dates: start: 20021001, end: 20040901
  3. FUROSEMIDE [Concomitant]
     Route: 048
     Dates: start: 19991028
  4. LISINOPRIL [Concomitant]
     Route: 048
     Dates: start: 19991028
  5. SPIRONOLACTONE [Concomitant]
     Route: 048
     Dates: start: 19991028
  6. DIGOXIN [Concomitant]
     Route: 048
     Dates: start: 19991028
  7. ASPIRIN [Concomitant]
     Route: 048
     Dates: start: 19991028
  8. COUMADIN [Concomitant]
     Route: 048
     Dates: start: 19991028
  9. TYLENOL (CAPLET) [Concomitant]
     Indication: PAIN
     Dosage: 325-650MG IF NEEDED
     Route: 048
     Dates: start: 19991028

REACTIONS (4)
  - DIABETES MELLITUS [None]
  - DIABETES MELLITUS INADEQUATE CONTROL [None]
  - DIABETIC COMPLICATION [None]
  - DIABETIC NEPHROPATHY [None]
